FAERS Safety Report 18031067 (Version 1)
Quarter: 2020Q3

REPORT INFORMATION
  Report Type: Report from Study
  Country: US (occurrence: US)
  Receive Date: 20200716
  Receipt Date: 20200716
  Transmission Date: 20201103
  Serious: Yes (Hospitalization)
  Sender: FDA-Public Use
  Company Number: US-BAYER-2020-141141

PATIENT
  Age: 51 Year
  Sex: Female
  Weight: 86.17 kg

DRUGS (4)
  1. ADEMPAS [Suspect]
     Active Substance: RIOCIGUAT
     Indication: PULMONARY ARTERIAL HYPERTENSION
     Dosage: UNK
     Route: 048
     Dates: start: 20151110
  2. REMODULIN [Concomitant]
     Active Substance: TREPROSTINIL
     Dosage: 105 NANOGRAMS PER KILOGRAM PER MINUTE
  3. OPSUMIT [Concomitant]
     Active Substance: MACITENTAN
     Dosage: UNK
  4. ADEMPAS [Suspect]
     Active Substance: RIOCIGUAT
     Indication: PULMONARY ARTERIAL HYPERTENSION
     Dosage: 2.5 MG, TID
     Route: 048

REACTIONS (7)
  - Pain [None]
  - Hospitalisation [None]
  - Vomiting [None]
  - Depression [None]
  - Nausea [None]
  - Pain management [None]
  - Abdominal pain upper [None]

NARRATIVE: CASE EVENT DATE: 20200627
